FAERS Safety Report 23202320 (Version 9)
Quarter: 2025Q4

REPORT INFORMATION
  Report Type: Report from Study
  Country: US (occurrence: US)
  Receive Date: 20231120
  Receipt Date: 20251014
  Transmission Date: 20260117
  Serious: Yes (Other)
  Sender: ABBVIE
  Company Number: US-ABBVIE-5502828

PATIENT
  Age: 54 Year
  Sex: Female

DRUGS (4)
  1. SKYRIZI [Suspect]
     Active Substance: RISANKIZUMAB-RZAA
     Indication: Psoriasis
     Dosage: LAST ADMIN DATE 2019
     Route: 058
     Dates: start: 20190701
  2. SKYRIZI [Suspect]
     Active Substance: RISANKIZUMAB-RZAA
     Indication: Psoriasis
     Dosage: FORM STRENGTH: 150 MILLIGRAM??SOLUTION FOR INJECTION IN PRE-FILLED PEN
     Route: 058
     Dates: start: 202412
  3. SKYRIZI [Suspect]
     Active Substance: RISANKIZUMAB-RZAA
     Indication: Psoriasis
     Dosage: FORM STRENGTH: 150 MILLIGRAM??SOLUTION FOR INJECTION IN PRE-FILLED PEN
     Route: 058
     Dates: start: 201909, end: 202412
  4. PFIZER-BIONTECH COVID-19 VACCINE [Suspect]
     Active Substance: TOZINAMERAN
     Indication: COVID-19 immunisation
     Route: 030

REACTIONS (9)
  - Neoplasm [Recovering/Resolving]
  - Patella fracture [Unknown]
  - Bone neoplasm [Recovered/Resolved]
  - Pain [Recovered/Resolved]
  - Bursa injury [Unknown]
  - Bone cyst [Unknown]
  - Appendicitis [Unknown]
  - Appendicitis perforated [Recovered/Resolved]
  - Arthropathy [Unknown]

NARRATIVE: CASE EVENT DATE: 20230101
